FAERS Safety Report 5640121-9 (Version None)
Quarter: 2008Q1

REPORT INFORMATION
  Report Type: 
  Country: None (occurrence: None)
  Receive Date: 20080227
  Receipt Date: 20080218
  Transmission Date: 20080703
  Serious: Yes (Other)
  Sender: FDA-Public Use
  Company Number: FR-BRACCO-000011

PATIENT
  Sex: Female

DRUGS (4)
  1. IOPAMIRON [Suspect]
     Indication: ABDOMEN SCAN
     Route: 042
     Dates: start: 20071214, end: 20071214
  2. IOPAMIRON [Suspect]
     Indication: ABDOMINAL PAIN UPPER
     Route: 042
     Dates: start: 20071214, end: 20071214
  3. ATARAXOID [Concomitant]
     Route: 042
     Dates: start: 20071214, end: 20071214
  4. ATARAXOID [Concomitant]
     Route: 048
     Dates: start: 20071214, end: 20071215

REACTIONS (1)
  - ANGIOEDEMA [None]
